FAERS Safety Report 9156868 (Version 6)
Quarter: 2014Q2

REPORT INFORMATION
  Report Type: Spontaneous
  Country: US (occurrence: US)
  Receive Date: 20130312
  Receipt Date: 20140604
  Transmission Date: 20141212
  Serious: Yes (Hospitalization, Other)
  Sender: FDA-Public Use
  Company Number: US-AMGEN-USASP2013015793

PATIENT
  Age: 57 Year
  Sex: Male
  Weight: 113 kg

DRUGS (12)
  1. ENBREL [Suspect]
     Indication: PSORIASIS
     Dosage: 50 MG, 2 TIMES/WK
     Route: 058
     Dates: start: 20130227
  2. ENBREL [Suspect]
     Indication: PSORIATIC ARTHROPATHY
     Dosage: UNK
     Route: 065
  3. ALEVE [Concomitant]
     Dosage: UNK
  4. FENOFIBRATE [Concomitant]
     Dosage: UNK
  5. FUROSEMIDE [Concomitant]
     Dosage: UNK
  6. LISINOPRIL [Concomitant]
     Dosage: UNK
  7. SLEEP AID                          /00000402/ [Concomitant]
     Dosage: UNK
  8. GLUCOSAMINE [Concomitant]
     Dosage: UNK
  9. MULTIVITAMINS, PLAIN [Concomitant]
     Dosage: UNK
  10. XARELTO [Concomitant]
     Dosage: UNK
  11. MAGNESIUM OXIDE [Concomitant]
     Dosage: UNK
  12. KLOR-CON [Concomitant]
     Dosage: UNK

REACTIONS (9)
  - Bladder cancer [Recovered/Resolved]
  - Dyspnoea [Recovered/Resolved]
  - Post procedural complication [Not Recovered/Not Resolved]
  - Urinary tract obstruction [Recovered/Resolved]
  - Cardiac failure congestive [Not Recovered/Not Resolved]
  - Extra dose administered [Recovered/Resolved]
  - Renal cancer [Recovered/Resolved]
  - Injection site extravasation [Recovered/Resolved]
  - Injection site haemorrhage [Recovered/Resolved]
